FAERS Safety Report 9440074 (Version 4)
Quarter: 2018Q2

REPORT INFORMATION
  Report Type: Report from Study
  Country: JP (occurrence: JP)
  Receive Date: 20130805
  Receipt Date: 20180522
  Transmission Date: 20180711
  Serious: Yes (Death, Hospitalization, Other)
  Sender: FDA-Public Use
  Company Number: JP-OTSUKA-JP-2013-12729

PATIENT
  Age: 85 Year
  Sex: Male

DRUGS (6)
  1. TOLVAPTAN [Suspect]
     Active Substance: TOLVAPTAN
     Indication: CARDIAC FAILURE
  2. INOVAN [Concomitant]
     Active Substance: DOPAMINE HYDROCHLORIDE
     Indication: CARDIAC FAILURE
     Dosage: 50 ML, QD
     Route: 041
     Dates: start: 20130507, end: 20130511
  3. TOLVAPTAN [Suspect]
     Active Substance: TOLVAPTAN
     Indication: FLUID RETENTION
     Dosage: 15 MG, QD
     Route: 048
     Dates: start: 20130507, end: 20130510
  4. HERBESSER [Concomitant]
     Active Substance: DILTIAZEM HYDROCHLORIDE
     Indication: CARDIAC FAILURE
     Dosage: 50 MG, QD
     Route: 042
     Dates: start: 20130507, end: 20130511
  5. LASIX [Concomitant]
     Active Substance: FUROSEMIDE
     Indication: CARDIAC FAILURE
     Dosage: 20 MG, QD
     Route: 042
     Dates: start: 20130507, end: 20130511
  6. PRECEDEX [Concomitant]
     Active Substance: DEXMEDETOMIDINE HYDROCHLORIDE
     Indication: SEDATION
     Dosage: 200 ?G, QD
     Route: 042
     Dates: start: 20130507, end: 20130511

REACTIONS (3)
  - Multiple organ dysfunction syndrome [Fatal]
  - Hepatic function abnormal [Recovered/Resolved]
  - Hypernatraemia [Fatal]

NARRATIVE: CASE EVENT DATE: 20130508
